FAERS Safety Report 5464262-4 (Version None)
Quarter: 2007Q3

REPORT INFORMATION
  Report Type: 
  Country: None (occurrence: None)
  Receive Date: 20070921
  Receipt Date: 20070918
  Transmission Date: 20080115
  Serious: Yes (Other)
  Sender: FDA-Public Use
  Company Number: A0682743A

PATIENT
  Age: 88 Year
  Sex: Female

DRUGS (6)
  1. COREG [Suspect]
     Dosage: 25MG TWICE PER DAY
     Route: 048
  2. FUROSEMIDE [Concomitant]
  3. LEVOTHYROXINE SODIUM [Concomitant]
  4. EVISTA [Concomitant]
  5. LISINOPRIL [Concomitant]
  6. ATENOLOL [Concomitant]

REACTIONS (2)
  - BLINDNESS [None]
  - VISUAL ACUITY REDUCED [None]
